FAERS Safety Report 21931505 (Version 1)
Quarter: 2023Q1

REPORT INFORMATION
  Report Type: Spontaneous
  Country: US (occurrence: None)
  Receive Date: 20230130
  Receipt Date: 20230130
  Transmission Date: 20230417
  Serious: Yes (Other)
  Sender: FDA-Public Use
  Company Number: None

PATIENT
  Sex: Female

DRUGS (5)
  1. NORDITROPIN [Suspect]
     Active Substance: SOMATROPIN
     Indication: Hypopituitarism
     Route: 058
     Dates: start: 20220308
  2. DULOXETINE [Concomitant]
     Active Substance: DULOXETINE
  3. HYDROCORT AC SUP [Concomitant]
  4. LEVOTHYROXIN TAB [Concomitant]
  5. POTASSIUM POW BENZOATE [Concomitant]

REACTIONS (1)
  - Cholecystectomy [None]
